FAERS Safety Report 7559838-4 (Version None)
Quarter: 2011Q2

REPORT INFORMATION
  Report Type: 
  Country: None (occurrence: None)
  Receive Date: 20110621
  Receipt Date: 20110609
  Transmission Date: 20111010
  Serious: Yes (Hospitalization)
  Sender: FDA-Public Use
  Company Number: PHHY2011NL50973

PATIENT
  Age: 51 Year
  Sex: Female

DRUGS (3)
  1. TEMAZEPAM [Suspect]
     Dosage: 50 DF, UNK
  2. DIPYRIDAMOLE [Suspect]
     Dosage: 60 DF, UNK
  3. OXAZEPAM [Suspect]
     Dosage: 20 DF, UNK

REACTIONS (8)
  - ATRIOVENTRICULAR BLOCK FIRST DEGREE [None]
  - INTENTIONAL OVERDOSE [None]
  - BLOOD PRESSURE DECREASED [None]
  - VOMITING [None]
  - SOMNOLENCE [None]
  - CHEST PAIN [None]
  - LOSS OF CONSCIOUSNESS [None]
  - HEADACHE [None]
